FAERS Safety Report 6302016-7 (Version None)
Quarter: 2009Q3

REPORT INFORMATION
  Report Type: 
  Country: None (occurrence: None)
  Receive Date: 20090807
  Receipt Date: 20090728
  Transmission Date: 20100115
  Serious: Yes (Other)
  Sender: FDA-Public Use
  Company Number: JP-PFIZER INC-2009244675

PATIENT
  Age: 61 Year

DRUGS (3)
  1. CHAMPIX [Suspect]
     Indication: SMOKING CESSATION THERAPY
     Dosage: UNK
     Route: 048
     Dates: start: 20080714, end: 20081020
  2. VALSARTAN [Concomitant]
  3. SEPAZON [Concomitant]
     Route: 048

REACTIONS (5)
  - DEPRESSION [None]
  - HALLUCINATION [None]
  - PERSECUTORY DELUSION [None]
  - PSYCHOTIC DISORDER [None]
  - SOCIAL AVOIDANT BEHAVIOUR [None]
